FAERS Safety Report 14816796 (Version 5)
Quarter: 2019Q4

REPORT INFORMATION
  Report Type: Spontaneous
  Country: JP (occurrence: JP)
  Receive Date: 20180426
  Receipt Date: 20191114
  Transmission Date: 20200122
  Serious: Yes (Hospitalization, Other)
  Sender: FDA-Public Use
  Company Number: JP-ELI_LILLY_AND_COMPANY-JP201804012785

PATIENT
  Age: 71 Year
  Sex: Male

DRUGS (3)
  1. ETRETINATE [Concomitant]
     Active Substance: ETRETINATE
     Indication: PSORIASIS
     Dosage: 20 MG, DAILY
     Route: 048
  2. TALTZ [Suspect]
     Active Substance: IXEKIZUMAB
     Indication: PUSTULAR PSORIASIS
     Dosage: 160 MG, SINGLE
     Route: 058
     Dates: start: 20170313, end: 20170313
  3. TALTZ [Suspect]
     Active Substance: IXEKIZUMAB
     Dosage: 80 MG, UNK
     Route: 058

REACTIONS (2)
  - Mechanical ileus [Recovered/Resolved]
  - Rectal cancer [Unknown]

NARRATIVE: CASE EVENT DATE: 20180117
